FAERS Safety Report 18599966 (Version 2)
Quarter: 2022Q3

REPORT INFORMATION
  Report Type: Spontaneous
  Country: US (occurrence: US)
  Receive Date: 20201210
  Receipt Date: 20220810
  Transmission Date: 20221027
  Serious: No
  Sender: FDA-Public Use
  Company Number: US-SA-2020SA353778

PATIENT
  Age: 13 Year
  Sex: Male

DRUGS (2)
  1. DUPIXENT [Suspect]
     Active Substance: DUPILUMAB
     Dosage: UNK
     Route: 058
     Dates: start: 202011
  2. DUPIXENT [Suspect]
     Active Substance: DUPILUMAB
     Dosage: 200 MG
     Route: 058

REACTIONS (5)
  - Headache [Unknown]
  - Dry skin [Unknown]
  - Headache [Recovering/Resolving]
  - Oral herpes [Unknown]
  - Rash pruritic [Recovered/Resolved]

NARRATIVE: CASE EVENT DATE: 20201201
